FAERS Safety Report 4496661-1 (Version None)
Quarter: 2004Q4

REPORT INFORMATION
  Report Type: 
  Country: None (occurrence: None)
  Receive Date: 20041108
  Receipt Date: 20041108
  Transmission Date: 20050328
  Serious: Yes (Hospitalization)
  Sender: FDA-Public Use
  Company Number: None

PATIENT
  Age: 71 Year
  Sex: Male
  Weight: 77 kg

DRUGS (2)
  1. GEMFIBROZIL [Suspect]
     Indication: HYPERLIPIDAEMIA
     Dosage: 200 MG DAILY ORAL
     Route: 048
     Dates: start: 20041004, end: 20041101
  2. GATIFLOXACIN [Concomitant]

REACTIONS (4)
  - EOSINOPHILS URINE PRESENT [None]
  - NEPHRITIS INTERSTITIAL [None]
  - RASH [None]
  - RENAL FAILURE ACUTE [None]
